FAERS Safety Report 4739003-6 (Version None)
Quarter: 2005Q3

REPORT INFORMATION
  Report Type: 
  Country: None (occurrence: None)
  Receive Date: 20050801
  Receipt Date: 20050316
  Transmission Date: 20060218
  Serious: Yes (Hospitalization)
  Sender: FDA-Public Use
  Company Number: 213163

PATIENT
  Age: 78 Year
  Sex: Male

DRUGS (1)
  1. RITUXAN [Suspect]
     Indication: MANTLE CELL LYMPHOMA
     Dosage: MG, INTRAVENOUS
     Route: 042
     Dates: start: 20031017

REACTIONS (4)
  - DYSPNOEA [None]
  - HYPOTENSION [None]
  - PALPITATIONS [None]
  - RASH [None]
